FAERS Safety Report 24188301 (Version 1)
Quarter: 2024Q3

REPORT INFORMATION
  Report Type: Spontaneous
  Country: US (occurrence: US)
  Receive Date: 20240808
  Receipt Date: 20240808
  Transmission Date: 20241017
  Serious: No
  Sender: OTSUKA
  Company Number: US-OTSUKA-2023_025111

PATIENT
  Sex: Male
  Weight: 53.98 kg

DRUGS (2)
  1. ABILIFY [Suspect]
     Active Substance: ARIPIPRAZOLE
     Indication: Urethritis
     Dosage: UNK ( DURING 26 YEAR)
     Route: 065
     Dates: start: 2009
  2. ABILIFY [Suspect]
     Active Substance: ARIPIPRAZOLE
     Dosage: 7 DF, QD (7 AT ONE TIME)
     Route: 065

REACTIONS (4)
  - Diarrhoea [Unknown]
  - Off label use [Unknown]
  - Drug effective for unapproved indication [Unknown]
  - Intentional product misuse [Unknown]

NARRATIVE: CASE EVENT DATE: 20090101
